FAERS Safety Report 11499869 (Version 5)
Quarter: 2016Q2

REPORT INFORMATION
  Report Type: Spontaneous
  Country: US (occurrence: US)
  Receive Date: 20150914
  Receipt Date: 20160412
  Transmission Date: 20160815
  Serious: Yes (Death, Other)
  Sender: FDA-Public Use
  Company Number: US-ELI_LILLY_AND_COMPANY-US201509002583

PATIENT
  Age: 50 Year
  Sex: Male

DRUGS (6)
  1. DIAZEPAM. [Concomitant]
     Active Substance: DIAZEPAM
     Indication: PRODUCT USED FOR UNKNOWN INDICATION
     Dosage: 1 DF, BID
     Route: 065
  2. VICODIN [Concomitant]
     Active Substance: ACETAMINOPHEN\HYDROCODONE BITARTRATE
     Indication: PAIN
     Dosage: 600 MG, BID
     Route: 065
  3. LIVALO [Concomitant]
     Active Substance: PITAVASTATIN CALCIUM
     Indication: PRODUCT USED FOR UNKNOWN INDICATION
     Dosage: 1 DF, EACH EVENING
     Route: 048
  4. CYMBALTA [Suspect]
     Active Substance: DULOXETINE HYDROCHLORIDE
     Dosage: UNK, QD
     Route: 065
     Dates: start: 201206
  5. CYMBALTA [Suspect]
     Active Substance: DULOXETINE HYDROCHLORIDE
     Indication: ANXIETY
     Dosage: 60 MG, QD
     Route: 048
     Dates: start: 201104, end: 201105
  6. CYMBALTA [Suspect]
     Active Substance: DULOXETINE HYDROCHLORIDE
     Indication: BACK PAIN
     Dosage: 30 MG, UNKNOWN
     Route: 048
     Dates: start: 20110524, end: 201205

REACTIONS (29)
  - Mental disorder [Unknown]
  - Vertigo [Unknown]
  - Fatigue [Unknown]
  - Irritability [Unknown]
  - Hyperhidrosis [Unknown]
  - Nightmare [Unknown]
  - Diarrhoea [Unknown]
  - Nausea [Unknown]
  - Apathy [Unknown]
  - Hallucination [Unknown]
  - Faecaloma [Unknown]
  - Agitation [Unknown]
  - Asthenia [Unknown]
  - Drug ineffective [Unknown]
  - Drug withdrawal syndrome [Unknown]
  - Confusional state [Unknown]
  - Tremor [Unknown]
  - Suicidal ideation [Unknown]
  - Paraesthesia [Unknown]
  - Drug intolerance [Unknown]
  - Wrong technique in product usage process [Unknown]
  - Intentional self-injury [Unknown]
  - Influenza like illness [Unknown]
  - Constipation [Unknown]
  - Seizure [Unknown]
  - Anxiety [Unknown]
  - Dizziness [Unknown]
  - Completed suicide [Fatal]
  - Insomnia [Unknown]

NARRATIVE: CASE EVENT DATE: 201104
